FAERS Safety Report 7321524-3 (Version None)
Quarter: 2011Q1

REPORT INFORMATION
  Report Type: 
  Country: None (occurrence: None)
  Receive Date: 20110228
  Receipt Date: 20100330
  Transmission Date: 20110831
  Serious: No
  Sender: FDA-Public Use
  Company Number: A0843877A

PATIENT
  Sex: Female

DRUGS (1)
  1. VALTREX [Suspect]
     Dosage: 1G SEE DOSAGE TEXT
     Route: 048

REACTIONS (3)
  - DRUG INEFFECTIVE [None]
  - ORAL HERPES [None]
  - PRODUCT QUALITY ISSUE [None]
